FAERS Safety Report 6729768-6 (Version None)
Quarter: 2010Q2

REPORT INFORMATION
  Report Type: 
  Country: None (occurrence: None)
  Receive Date: 20100518
  Receipt Date: 20100318
  Transmission Date: 20101027
  Serious: Yes (Other)
  Sender: FDA-Public Use
  Company Number: JP-BAYER-200812632BYL

PATIENT
  Age: 60 Year
  Sex: Male
  Weight: 69 kg

DRUGS (8)
  1. NEXAVAR [Suspect]
     Indication: RENAL CELL CARCINOMA
     Dosage: TOTAL DAILY DOSE: 800 MG  UNIT DOSE: 200 MG
     Route: 048
     Dates: start: 20081015, end: 20081116
  2. NEXAVAR [Suspect]
     Dosage: UNIT DOSE: 200 MG
     Route: 048
     Dates: start: 20081117, end: 20081130
  3. NEXAVAR [Suspect]
     Dosage: UNIT DOSE: 200 MG
     Route: 048
     Dates: start: 20081201, end: 20081215
  4. NEXAVAR [Suspect]
     Dosage: UNIT DOSE: 200 MG
     Route: 048
     Dates: start: 20081216, end: 20090729
  5. NEXAVAR [Suspect]
     Dosage: UNIT DOSE: 200 MG
     Route: 048
     Dates: start: 20090730, end: 20090808
  6. NEXAVAR [Suspect]
     Dosage: UNIT DOSE: 200 MG
     Route: 048
     Dates: start: 20090809
  7. PARIET [Concomitant]
     Route: 048
     Dates: start: 20081020, end: 20100312
  8. MAGNESIUM OXIDE [Concomitant]
     Route: 048
     Dates: start: 20081023, end: 20081031

REACTIONS (7)
  - BLOOD AMYLASE INCREASED [None]
  - DRUG ERUPTION [None]
  - HEPATIC FUNCTION ABNORMAL [None]
  - HICCUPS [None]
  - HYPERTENSION [None]
  - LIPASE INCREASED [None]
  - PYREXIA [None]
